FAERS Safety Report 5381221-0 (Version None)
Quarter: 2007Q3

REPORT INFORMATION
  Report Type: 
  Country: None (occurrence: None)
  Receive Date: 20070706
  Receipt Date: 20070625
  Transmission Date: 20080115
  Serious: Yes (Other)
  Sender: FDA-Public Use
  Company Number: US-GENENTECH-243595

PATIENT
  Sex: Female

DRUGS (4)
  1. RAPTIVA [Suspect]
     Indication: PSORIASIS
     Dosage: 0.5 ML, 1/WEEK
     Route: 058
     Dates: start: 20040601
  2. TYLENOL #3 (UNITED STATES) [Concomitant]
     Indication: COUGH
     Dosage: UNK, UNK
     Dates: start: 20070101
  3. DIOVAN [Concomitant]
     Indication: DRUG USE FOR UNKNOWN INDICATION
  4. DARVOCET-N 100 [Concomitant]
     Indication: DRUG USE FOR UNKNOWN INDICATION

REACTIONS (3)
  - COUGH [None]
  - GASTROENTERITIS VIRAL [None]
  - LOSS OF CONSCIOUSNESS [None]
